FAERS Safety Report 22909072 (Version 2)
Quarter: 2023Q4

REPORT INFORMATION
  Report Type: Spontaneous
  Country: PL (occurrence: PL)
  Receive Date: 20230906
  Receipt Date: 20231121
  Transmission Date: 20240110
  Serious: Yes (Hospitalization, Other)
  Sender: FDA-Public Use
  Company Number: PL-Orion Corporation ORION PHARMA-DEPR2023-0003

PATIENT
  Age: 26 Year
  Sex: Female

DRUGS (22)
  1. CLONAZEPAM [Suspect]
     Active Substance: CLONAZEPAM
     Indication: Polyneuropathy
     Dosage: 1 MILLIGRAM, UNK
  2. GABAPENTIN [Suspect]
     Active Substance: GABAPENTIN
     Indication: Neuralgia
     Dosage: 400 MG, TID
  3. LEVETIRACETAM [Suspect]
     Active Substance: LEVETIRACETAM
     Indication: Polyneuropathy
     Dosage: 2000 MILLIGRAM, UNK
  4. FENTANYL [Suspect]
     Active Substance: FENTANYL\FENTANYL CITRATE
     Indication: Neuralgia
     Dosage: 300 UG EVERY 1 H INTRANASALLY TRANSMUCOSALLY
  5. PREDNISONE [Suspect]
     Active Substance: PREDNISONE
     Indication: Neuralgia
     Dosage: 10 MG
  6. PIRACETAM [Suspect]
     Active Substance: PIRACETAM
     Indication: Polyneuropathy
     Dosage: 4800 MILLIGRAM, UNK
  7. PAROXETINE HYDROCHLORIDE [Suspect]
     Active Substance: PAROXETINE HYDROCHLORIDE\PAROXETINE HYDROCHLORIDE ANHYDROUS
     Indication: Polyneuropathy
     Dosage: 80 MILLIGRAM, UNK
  8. IBUPROFEN [Suspect]
     Active Substance: IBUPROFEN
     Indication: Neuralgia
     Dosage: 2 X 400 MG
  9. PIRACETAM [Suspect]
     Active Substance: PIRACETAM
     Indication: Nervous system disorder
     Dosage: 2 X 2400 MG
  10. PREDNISONE [Suspect]
     Active Substance: PREDNISONE
     Indication: Neuralgia
  11. VALPROIC ACID [Suspect]
     Active Substance: VALPROIC ACID
     Indication: Neuralgia
     Dosage: 2 X 300 MG
  12. DULOXETINE [Concomitant]
     Active Substance: DULOXETINE
     Indication: Pain
  13. CLONAZEPAM [Concomitant]
     Active Substance: CLONAZEPAM
     Indication: Myoclonus
     Dosage: 2 X 0.5 MG
  14. AMITRIPTYLINE [Concomitant]
     Active Substance: AMITRIPTYLINE
     Indication: Pain
     Dosage: 50 MG, DAILY
  15. MORPHINE [Suspect]
     Active Substance: MORPHINE
     Indication: Pain
     Dosage: 30 MILLIGRAM, BID
  16. PAROXETINE HYDROCHLORIDE [Suspect]
     Active Substance: PAROXETINE HYDROCHLORIDE\PAROXETINE HYDROCHLORIDE ANHYDROUS
     Indication: Nervous system disorder
     Dosage: 1 X 40 MG IN THE MORNING
  17. FENTANYL [Suspect]
     Active Substance: FENTANYL\FENTANYL CITRATE
     Indication: Neuralgia
     Dosage: 150 UG/H EVERY 3 DAYS
  18. GABAPENTIN [Suspect]
     Active Substance: GABAPENTIN
     Indication: Polyneuropathy
     Dosage: 1200 MILLIGRAM, UNK
  19. GABAPENTIN [Suspect]
     Active Substance: GABAPENTIN
     Indication: Neuralgia
     Dosage: 600 UNK
  20. GABAPENTIN [Suspect]
     Active Substance: GABAPENTIN
     Indication: Neuralgia
     Dosage: 600 MG, DAILY
  21. LEVETIRACETAM [Suspect]
     Active Substance: LEVETIRACETAM
     Indication: Myoclonus
     Dosage: 2 X 1000 MG
  22. LEVETIRACETAM [Suspect]
     Active Substance: LEVETIRACETAM
     Indication: Myoclonus
     Dosage: 800 MG, BID

REACTIONS (17)
  - Speech disorder [Recovered/Resolved]
  - Neuralgia [Recovered/Resolved]
  - Abdominal pain [Recovering/Resolving]
  - Somnolence [Recovered/Resolved]
  - Condition aggravated [Recovered/Resolved]
  - Disorientation [Recovered/Resolved]
  - Mitochondrial encephalomyopathy [Recovered/Resolved]
  - Disorganised speech [Recovered/Resolved]
  - Myoclonus [Recovered/Resolved]
  - Pain [Recovered/Resolved]
  - Drug dependence [Unknown]
  - Mitochondrial toxicity [Recovering/Resolving]
  - Pain in extremity [Recovered/Resolved]
  - Hypoaesthesia [Recovered/Resolved]
  - Restlessness [Recovered/Resolved]
  - Product selection error [Recovered/Resolved]
  - Drug abuse [Recovered/Resolved]

NARRATIVE: CASE EVENT DATE: 20220501
